FAERS Safety Report 10095606 (Version 1)
Quarter: 2014Q2

REPORT INFORMATION
  Report Type: Spontaneous
  Country: US (occurrence: None)
  Receive Date: 20140410
  Receipt Date: 20140410
  Transmission Date: 20141212
  Serious: Yes (Death)
  Sender: FDA-Public Use
  Company Number: 2014-00641

PATIENT
  Age: 71 Year
  Sex: Male

DRUGS (2)
  1. ZOLPIDEM [Suspect]
     Indication: PRODUCT USED FOR UNKNOWN INDICATION
     Dosage: UNKOWN (UNKNOWN, UNKNOWN, UNKNOWN) , ORAL
     Route: 048
  2. ACETAMINOPHEN/HYDROCODONE [Suspect]
     Dosage: UNKOWN (UNKNOWN, UNKNOWN, UNKNOWN), ORAL
     Route: 048

REACTIONS (1)
  - Completed suicide [None]
